FAERS Safety Report 6541165-5 (Version None)
Quarter: 2010Q1

REPORT INFORMATION
  Report Type: 
  Country: None (occurrence: None)
  Receive Date: 20100118
  Receipt Date: 20100113
  Transmission Date: 20100710
  Serious: Yes (Other)
  Sender: FDA-Public Use
  Company Number: A0839557A

PATIENT
  Sex: Female

DRUGS (2)
  1. AROPAX [Suspect]
     Indication: DEPRESSION
     Dosage: 30MG UNKNOWN
     Route: 048
     Dates: end: 20091226
  2. LEXOTAN [Concomitant]
     Dosage: 1TAB PER DAY
     Route: 048

REACTIONS (2)
  - HYPERTHYROIDISM [None]
  - UNDERWEIGHT [None]
